FAERS Safety Report 22265753 (Version 5)
Quarter: 2024Q2

REPORT INFORMATION
  Report Type: Spontaneous
  Country: CA (occurrence: CA)
  Receive Date: 20230428
  Receipt Date: 20240401
  Transmission Date: 20240716
  Serious: Yes (Other)
  Sender: FDA-Public Use
  Company Number: CA-Covis Pharma Europe B.V.-2023COV01024

PATIENT
  Age: 67 Year
  Sex: Female

DRUGS (9)
  1. ACLIDINIUM BROMIDE [Suspect]
     Active Substance: ACLIDINIUM BROMIDE
     Route: 055
  2. SYMBICORT [Suspect]
     Active Substance: BUDESONIDE\FORMOTEROL FUMARATE DIHYDRATE
     Route: 055
  3. ALBUTEROL SULFATE [Suspect]
     Active Substance: ALBUTEROL SULFATE
     Indication: Asthma
     Dosage: AS NEEDED
     Route: 055
  4. NUCALA [Suspect]
     Active Substance: MEPOLIZUMAB
     Indication: Asthma
     Route: 042
     Dates: start: 20181220
  5. MEPOLIZUMAB [Suspect]
     Active Substance: MEPOLIZUMAB
     Indication: Asthma
     Route: 058
     Dates: start: 20181220
  6. MEPOLIZUMAB [Suspect]
     Active Substance: MEPOLIZUMAB
     Route: 058
  7. MEPOLIZUMAB [Suspect]
     Active Substance: MEPOLIZUMAB
     Route: 058
  8. ASPIRIN [Suspect]
     Active Substance: ASPIRIN
  9. B12 [Concomitant]
     Route: 042

REACTIONS (14)
  - Neoplasm malignant [Unknown]
  - Full blood count abnormal [Unknown]
  - Blood urine present [Unknown]
  - Decreased appetite [Unknown]
  - Haematochezia [Unknown]
  - Hypertension [Unknown]
  - Obstructive airways disorder [Unknown]
  - Blood pressure increased [Unknown]
  - Drug hypersensitivity [Unknown]
  - Asthma [Unknown]
  - Dysuria [Unknown]
  - Dizziness [Unknown]
  - Nasopharyngitis [Unknown]
  - Incorrect product administration duration [Unknown]
